FAERS Safety Report 10371712 (Version 1)
Quarter: 2014Q3

REPORT INFORMATION
  Report Type: Spontaneous
  Country: US (occurrence: None)
  Receive Date: 20140807
  Receipt Date: 20140807
  Transmission Date: 20150326
  Serious: No
  Sender: FDA-Public Use
  Company Number: None

PATIENT
  Age: 62 Year
  Sex: Male
  Weight: 129.28 kg

DRUGS (10)
  1. GLUCOPHAGE [Concomitant]
     Active Substance: METFORMIN HYDROCHLORIDE
  2. MULTI VITAMINS [Concomitant]
  3. CADUET 10/20 [Concomitant]
  4. HCTZ [Concomitant]
     Active Substance: HYDROCHLOROTHIAZIDE
  5. LYRICA [Suspect]
     Active Substance: PREGABALIN
     Indication: DIABETIC NEUROPATHY
     Route: 048
     Dates: start: 20140601, end: 20140718
  6. ZOLOFT [Concomitant]
     Active Substance: SERTRALINE HYDROCHLORIDE
  7. COREG [Concomitant]
     Active Substance: CARVEDILOL
  8. 12 + COMPLEX [Concomitant]
  9. SYNTHROID [Concomitant]
     Active Substance: LEVOTHYROXINE SODIUM
  10. B6 [Concomitant]
     Active Substance: PYRIDOXINE HYDROCHLORIDE

REACTIONS (16)
  - Tremor [None]
  - Facial bones fracture [None]
  - Dysstasia [None]
  - Abasia [None]
  - Drug hypersensitivity [None]
  - Dysarthria [None]
  - Rash generalised [None]
  - Dry mouth [None]
  - Secretion discharge [None]
  - Peripheral swelling [None]
  - Fall [None]
  - Ataxia [None]
  - Laceration [None]
  - Foot fracture [None]
  - Somnolence [None]
  - Skin lesion [None]

NARRATIVE: CASE EVENT DATE: 20140630
